FAERS Safety Report 4355922-7 (Version None)
Quarter: 2004Q2

REPORT INFORMATION
  Report Type: 
  Country: None (occurrence: None)
  Receive Date: 20040505
  Receipt Date: 20040421
  Transmission Date: 20050107
  Serious: Yes (Death, Other)
  Sender: FDA-Public Use
  Company Number: 083-20785-04040659

PATIENT
  Age: 85 Year
  Sex: Male

DRUGS (4)
  1. THALIDOMIDE (THALIDOMIDE) (CAPSULES) [Suspect]
     Indication: MULTIPLE MYELOMA
     Dosage: SEE IMAGE
     Route: 048
     Dates: start: 20000901, end: 20001101
  2. THALIDOMIDE (THALIDOMIDE) (CAPSULES) [Suspect]
     Indication: MULTIPLE MYELOMA
     Dosage: SEE IMAGE
     Route: 048
     Dates: start: 20000901
  3. MELPHALAN (MELPHALAN) [Concomitant]
  4. PREDNISONE [Concomitant]

REACTIONS (9)
  - BLOOD IMMUNOGLOBULIN G INCREASED [None]
  - HAEMOGLOBIN DECREASED [None]
  - MALIGNANT NEOPLASM PROGRESSION [None]
  - METASTASES TO BONE [None]
  - METASTASES TO SPINE [None]
  - MULTIPLE MYELOMA [None]
  - PLASMACYTOSIS [None]
  - PNEUMONIA [None]
  - RENAL FAILURE [None]
